FAERS Safety Report 4608430-X (Version None)
Quarter: 2005Q1

REPORT INFORMATION
  Report Type: 
  Country: None (occurrence: None)
  Receive Date: 20050311
  Receipt Date: 20050311
  Transmission Date: 20050727
  Serious: Yes (Hospitalization)
  Sender: FDA-Public Use
  Company Number: None

PATIENT
  Age: 89 Year
  Sex: Male

DRUGS (5)
  1. UNASYN [Suspect]
     Indication: COLITIS
     Dosage: INTRAVENOUS ; 3.0 GM
     Route: 042
     Dates: start: 20041229, end: 20050102
  2. UNASYN [Suspect]
     Indication: SEPSIS
     Dosage: INTRAVENOUS ; 3.0 GM
     Route: 042
     Dates: start: 20041229, end: 20050102
  3. VANCOMYCIN [Concomitant]
  4. ASPIRIN [Concomitant]
  5. FLUCONAZOLE [Concomitant]

REACTIONS (1)
  - THROMBOCYTOPENIA [None]
